FAERS Safety Report 18247358 (Version 1)
Quarter: 2020Q3

REPORT INFORMATION
  Report Type: Spontaneous
  Country: CA (occurrence: CA)
  Receive Date: 20200909
  Receipt Date: 20200909
  Transmission Date: 20201103
  Serious: Yes (Other)
  Sender: FDA-Public Use
  Company Number: CA-TEVA-2020-CA-1825465

PATIENT
  Age: 59 Year
  Sex: Female

DRUGS (6)
  1. TRIAMCINOLONE ACETONIDE. [Concomitant]
     Active Substance: TRIAMCINOLONE ACETONIDE
  2. METHOTREXATE. [Suspect]
     Active Substance: METHOTREXATE
     Route: 058
  3. METHOTREXATE. [Suspect]
     Active Substance: METHOTREXATE
     Route: 058
  4. LEFLUNOMIDE. [Concomitant]
     Active Substance: LEFLUNOMIDE
     Dosage: 20 MILLIGRAM DAILY;
  5. FOLIC ACID. [Concomitant]
     Active Substance: FOLIC ACID
  6. METHOTREXATE. [Suspect]
     Active Substance: METHOTREXATE
     Indication: PRODUCT USED FOR UNKNOWN INDICATION
     Route: 058

REACTIONS (7)
  - Musculoskeletal stiffness [Unknown]
  - Alanine aminotransferase increased [Unknown]
  - Off label use [Unknown]
  - Arthralgia [Unknown]
  - Renal impairment [Unknown]
  - Intentional product use issue [Unknown]
  - Product use issue [Unknown]
